FAERS Safety Report 18452302 (Version 1)
Quarter: 2020Q4

REPORT INFORMATION
  Report Type: Spontaneous
  Country: US (occurrence: US)
  Receive Date: 20201102
  Receipt Date: 20201102
  Transmission Date: 20210114
  Serious: No
  Sender: FDA-Public Use
  Company Number: US-ACCORD-184211

PATIENT
  Sex: Female

DRUGS (1)
  1. ESCITALOPRAM ACCORD [Suspect]
     Active Substance: ESCITALOPRAM OXALATE
     Indication: DEPRESSION
     Dosage: STRENGTH: 10 MG
     Dates: start: 20200423

REACTIONS (5)
  - Restless legs syndrome [Unknown]
  - Product substitution issue [Unknown]
  - Anxiety [Unknown]
  - Tinnitus [Unknown]
  - Nightmare [Unknown]
